FAERS Safety Report 17806703 (Version 2)
Quarter: 2020Q2

REPORT INFORMATION
  Report Type: Spontaneous
  Country: DE (occurrence: DE)
  Receive Date: 20200520
  Receipt Date: 20200526
  Transmission Date: 20200714
  Serious: Yes (Hospitalization, Other)
  Sender: FDA-Public Use
  Company Number: DE-PFIZER INC-2020197327

PATIENT
  Age: 77 Year
  Sex: Male

DRUGS (1)
  1. ATROPINE SULFATE. [Suspect]
     Active Substance: ATROPINE SULFATE
     Indication: ENDOTRACHEAL INTUBATION
     Dosage: 0.5 MG, SINGLE
     Route: 042

REACTIONS (2)
  - Supraventricular tachycardia [Recovered/Resolved]
  - Atrial fibrillation [Recovered/Resolved]
